FAERS Safety Report 10143502 (Version 1)
Quarter: 2014Q2

REPORT INFORMATION
  Report Type: Spontaneous
  Country: US (occurrence: None)
  Receive Date: 20140429
  Receipt Date: 20140429
  Transmission Date: 20141212
  Serious: Yes (Hospitalization)
  Sender: FDA-Public Use
  Company Number: None

PATIENT
  Age: 50 Year
  Sex: Male
  Weight: 88.9 kg

DRUGS (4)
  1. SOFOSBUVIR [Suspect]
     Indication: HEPATITIS C
     Dosage: 400 DAILY ORAL
     Route: 048
     Dates: start: 20140204
  2. SIMEPREVIR [Suspect]
     Indication: HEPATITIS C
     Dosage: 150 MG DAILY ORAL
     Route: 048
     Dates: start: 20140204
  3. SOFOSBUVIR [Concomitant]
  4. RIBAVIRIN [Concomitant]

REACTIONS (2)
  - Fall [None]
  - Hepatic encephalopathy [None]
